FAERS Safety Report 6867403-7 (Version None)
Quarter: 2010Q3

REPORT INFORMATION
  Report Type: 
  Country: None (occurrence: None)
  Receive Date: 20100722
  Receipt Date: 20100720
  Transmission Date: 20110219
  Serious: Yes (Hospitalization)
  Sender: FDA-Public Use
  Company Number: US-BRISTOL-MYERS SQUIBB COMPANY-15200264

PATIENT
  Age: 41 Year
  Sex: Male
  Weight: 51 kg

DRUGS (3)
  1. REYATAZ [Suspect]
     Indication: HIV INFECTION
     Dates: start: 20100419
  2. NORVIR [Suspect]
  3. TRUVADA [Suspect]

REACTIONS (2)
  - DEHYDRATION [None]
  - RENAL FAILURE [None]
